FAERS Safety Report 17175024 (Version 1)
Quarter: 2019Q4

REPORT INFORMATION
  Report Type: Spontaneous
  Country: US (occurrence: US)
  Receive Date: 20191219
  Receipt Date: 20191219
  Transmission Date: 20200122
  Serious: No
  Sender: FDA-Public Use
  Company Number: NVSC2019US015649

PATIENT
  Sex: Female

DRUGS (1)
  1. GLEEVEC [Suspect]
     Active Substance: IMATINIB MESYLATE
     Indication: PRODUCT USED FOR UNKNOWN INDICATION
     Dosage: 800 OT
     Route: 065
     Dates: start: 2013

REACTIONS (7)
  - Jaw disorder [Unknown]
  - Pain in jaw [Unknown]
  - Skin wrinkling [Unknown]
  - Tooth disorder [Unknown]
  - Tooth injury [Unknown]
  - Gingival disorder [Unknown]
  - Stress [Unknown]
